FAERS Safety Report 4715055-4 (Version None)
Quarter: 2005Q2

REPORT INFORMATION
  Report Type: 
  Country: None (occurrence: None)
  Receive Date: 20050630
  Receipt Date: 20050304
  Transmission Date: 20051028
  Serious: Yes (Other)
  Sender: FDA-Public Use
  Company Number: 212844

PATIENT
  Age: 53 Year
  Sex: Female

DRUGS (3)
  1. AVASTIN [Suspect]
     Indication: COLORECTAL CANCER METASTATIC
     Dosage: 5 MG/KG, UNK, INTRAVENOUS
     Route: 042
     Dates: start: 20040106
  2. 5-FU (FLUOROURACIL) [Concomitant]
  3. PAIN  MEDICATIONS (ANALGESIC NOS) [Concomitant]

REACTIONS (1)
  - ENTEROCUTANEOUS FISTULA [None]
